FAERS Safety Report 7393570-5 (Version None)
Quarter: 2011Q2

REPORT INFORMATION
  Report Type: 
  Country: None (occurrence: None)
  Receive Date: 20110405
  Receipt Date: 20101014
  Transmission Date: 20111010
  Serious: Yes (Hospitalization, Other)
  Sender: FDA-Public Use
  Company Number: US-BAYER-200937057NA

PATIENT
  Sex: Female
  Weight: 66.9 kg

DRUGS (3)
  1. YASMIN [Suspect]
     Indication: OVARIAN CYST
     Dosage: 1 DF, QD
     Dates: start: 20050701, end: 20051001
  2. BENZACLIN [Concomitant]
  3. ADVIL LIQUI-GELS [Concomitant]
     Dosage: UNK UNK, PRN

REACTIONS (4)
  - CONVULSION [None]
  - CEREBROVASCULAR ACCIDENT [None]
  - DEPRESSION [None]
  - SUPERIOR SAGITTAL SINUS THROMBOSIS [None]
